FAERS Safety Report 6126941-5 (Version None)
Quarter: 2009Q1

REPORT INFORMATION
  Report Type: 
  Country: None (occurrence: None)
  Receive Date: 20090320
  Receipt Date: 20081008
  Transmission Date: 20090719
  Serious: No
  Sender: FDA-Public Use
  Company Number: US-ABBOTT-08P-163-0480536-00

PATIENT
  Sex: Female

DRUGS (3)
  1. ERYTHROMYCIN [Suspect]
     Indication: GINGIVAL INFECTION
     Route: 048
     Dates: start: 20080701, end: 20081008
  2. ERYTHROMYCIN [Suspect]
     Route: 048
     Dates: start: 20081001, end: 20081001
  3. ALPRAZOLAM [Concomitant]
     Indication: ANXIETY

REACTIONS (2)
  - OVERDOSE [None]
  - SKIN EXFOLIATION [None]
